FAERS Safety Report 7386513-1 (Version None)
Quarter: 2011Q1

REPORT INFORMATION
  Report Type: 
  Country: None (occurrence: None)
  Receive Date: 20110329
  Receipt Date: 20110329
  Transmission Date: 20110831
  Serious: Yes (Other)
  Sender: FDA-Public Use
  Company Number: None

PATIENT
  Sex: Female

DRUGS (4)
  1. OMEPRAZOLE [Concomitant]
  2. DIVALPROEX EXTENDED-RELEASE [Concomitant]
  3. ACTOS [Suspect]
     Indication: DIABETES MELLITUS
     Dosage: 30 MG ONCE DAILY OTHER
     Route: 050
     Dates: start: 20100614, end: 20110223
  4. TOLTERODINE TARTRATE [Concomitant]

REACTIONS (3)
  - NEUTROPHIL COUNT DECREASED [None]
  - PLATELET COUNT DECREASED [None]
  - WHITE BLOOD CELL COUNT DECREASED [None]
